FAERS Safety Report 15931869 (Version 1)
Quarter: 2019Q1

REPORT INFORMATION
  Report Type: Spontaneous
  Country: CZ (occurrence: CZ)
  Receive Date: 20190207
  Receipt Date: 20190207
  Transmission Date: 20190417
  Serious: Yes (Hospitalization, Other)
  Sender: FDA-Public Use
  Company Number: CZ-BAYER-2019-023196

PATIENT
  Age: 83 Year
  Sex: Female

DRUGS (15)
  1. ACETYLSALICYLIC ACID({=100 MG) [Suspect]
     Active Substance: ASPIRIN
     Route: 048
  2. CALCICHEW D3 [Suspect]
     Active Substance: CALCIUM\CHOLECALCIFEROL
     Route: 048
  3. VASOCARDIN [Suspect]
     Active Substance: METOPROLOL
     Dosage: STRENGTH: 200 MG;1/2-0-0 ()
     Route: 048
  4. WARFARIN [Interacting]
     Active Substance: WARFARIN
     Dosage: 5 MG, UNK
     Route: 048
     Dates: start: 1996
  5. TENAXUM [Suspect]
     Active Substance: RILMENIDINE
     Dosage: 1-0-1 ()
     Route: 065
  6. GODASAL [Suspect]
     Active Substance: ASPIRIN\GLYCINE
     Dosage: STRENGTH: 100 MG; 0-1/2-0 ()
     Route: 048
  7. ITOPRIDE [Suspect]
     Active Substance: ITOPRIDE
     Route: 065
  8. TRITACE [Suspect]
     Active Substance: RAMIPRIL
     Dosage: 1 DF STRENGTH: 10 MG; 1-0-0 ()
     Route: 065
  9. NOLPAZA [Suspect]
     Active Substance: PANTOPRAZOLE SODIUM
     Dosage: 1 DF STRENGTH: 20 MG; 1-0-0 ()
     Route: 048
  10. APO-PANTOPRAZOLE [Suspect]
     Active Substance: PANTOPRAZOLE SODIUM
     Dosage: 40 MG, UNK
     Route: 065
  11. HYDROCHLOROTHIAZIDE. [Suspect]
     Active Substance: HYDROCHLOROTHIAZIDE
     Dosage: STRENGTH: 25 MG; ?-0-0 ()
  12. CITALOPRAM [Suspect]
     Active Substance: CITALOPRAM HYDROBROMIDE
     Dosage: STRENGTH: 10 MG; 1-0-0 ()
     Route: 048
  13. FRAXIPARINE [Suspect]
     Active Substance: NADROPARIN CALCIUM
     Route: 058
  14. WARFARIN SODIUM. [Suspect]
     Active Substance: WARFARIN SODIUM
     Dosage: 3 MG, UNK
     Route: 048
     Dates: start: 1996
  15. OXYCONTIN [Suspect]
     Active Substance: OXYCODONE HYDROCHLORIDE
     Dosage: STRENGTH: 60 MG; ?-0-? ()
     Route: 048

REACTIONS (25)
  - Haematoma [Recovering/Resolving]
  - Arthralgia [Recovering/Resolving]
  - Asthenia [Recovering/Resolving]
  - Anticoagulation drug level above therapeutic [Recovering/Resolving]
  - Fall [Recovering/Resolving]
  - Labelled drug-drug interaction medication error [None]
  - Hypochloraemia [Recovering/Resolving]
  - Hypertension [Recovering/Resolving]
  - Urinary tract infection [Recovering/Resolving]
  - Urinary retention [Recovering/Resolving]
  - Hyponatraemia [Recovering/Resolving]
  - Confusional state [Recovered/Resolved]
  - Dehydration [Recovering/Resolving]
  - Renal failure [Recovering/Resolving]
  - Anaemia of chronic disease [Recovering/Resolving]
  - Somnolence [Recovering/Resolving]
  - Anal fissure [Recovering/Resolving]
  - Thrombocytosis [Recovering/Resolving]
  - Arthritis [Recovering/Resolving]
  - Gait inability [Recovering/Resolving]
  - Oedema peripheral [Recovered/Resolved]
  - International normalised ratio increased [Recovering/Resolving]
  - Psychomotor retardation [Recovering/Resolving]
  - Intestinal haemorrhage [Recovering/Resolving]
  - Constipation [Recovering/Resolving]
